FAERS Safety Report 16099438 (Version 1)
Quarter: 2019Q1

REPORT INFORMATION
  Report Type: Spontaneous
  Country: FR (occurrence: FR)
  Receive Date: 20190321
  Receipt Date: 20190321
  Transmission Date: 20190418
  Serious: Yes (Hospitalization)
  Sender: FDA-Public Use
  Company Number: FR-BAYER-FR-2006-007149

PATIENT
  Age: 42 Year
  Sex: Female

DRUGS (1)
  1. BETAFERON [Suspect]
     Active Substance: INTERFERON BETA-1B
     Indication: MULTIPLE SCLEROSIS
     Dosage: 250 ?G, QOD
     Route: 058
     Dates: start: 20000115, end: 20051207

REACTIONS (11)
  - Thrombotic thrombocytopenic purpura [Recovered/Resolved]
  - Urinary tract infection enterococcal [Recovered/Resolved]
  - Nervous system disorder [Recovered/Resolved]
  - Walking disability [Recovered/Resolved]
  - Cerebellar syndrome [Recovered/Resolved]
  - Haemolytic anaemia [Recovered/Resolved]
  - Hypoaesthesia [Recovered/Resolved]
  - Tenderness [Recovered/Resolved]
  - Renal failure [Recovered/Resolved]
  - Paraesthesia [Recovered/Resolved]
  - Blood creatinine increased [Recovered/Resolved]

NARRATIVE: CASE EVENT DATE: 200511
